FAERS Safety Report 4474333-7 (Version None)
Quarter: 2004Q4

REPORT INFORMATION
  Report Type: 
  Country: None (occurrence: None)
  Receive Date: 20041014
  Receipt Date: 20041004
  Transmission Date: 20050328
  Serious: Yes (Other)
  Sender: FDA-Public Use
  Company Number: GB-MERCK-0410GBR00034

PATIENT
  Age: 51 Year
  Sex: Male
  Weight: 95 kg

DRUGS (7)
  1. ACETAMINOPHEN AND DIHYDROCODEINE BITARTRATE [Concomitant]
     Indication: OSTEOARTHRITIS
     Route: 048
     Dates: start: 19950703
  2. ACETAMINOPHEN AND DIHYDROCODEINE BITARTRATE [Concomitant]
     Indication: GOUT
     Route: 048
     Dates: start: 19950703
  3. AMLODIPINE BESYLATE [Concomitant]
     Indication: HYPERTENSION
     Route: 048
     Dates: start: 20040119
  4. BENDROFLUMETHIAZIDE [Concomitant]
     Indication: HYPERTENSION
     Route: 048
     Dates: start: 20000301
  5. ZETIA [Suspect]
     Route: 048
     Dates: start: 20040831, end: 20040909
  6. MEFENAMIC ACID [Concomitant]
     Indication: OSTEOARTHRITIS
     Route: 048
     Dates: start: 19890621
  7. MEFENAMIC ACID [Concomitant]
     Indication: GOUT
     Route: 048
     Dates: start: 19890621

REACTIONS (3)
  - BLOOD CREATININE INCREASED [None]
  - MUSCULOSKELETAL STIFFNESS [None]
  - PAIN IN EXTREMITY [None]
